FAERS Safety Report 7163148-7 (Version None)
Quarter: 2010Q4

REPORT INFORMATION
  Report Type: 
  Country: None (occurrence: None)
  Receive Date: 20101215
  Receipt Date: 20100304
  Transmission Date: 20110411
  Serious: Yes (Other)
  Sender: FDA-Public Use
  Company Number: US-PFIZER INC-2010028295

PATIENT
  Sex: Male
  Weight: 104.3 kg

DRUGS (3)
  1. LYRICA [Suspect]
     Indication: NERVE INJURY
     Dosage: 150 MG, 1X/DAY
     Route: 048
     Dates: end: 20100303
  2. SKELAXIN [Concomitant]
     Indication: NEURALGIA
     Dosage: UNK
  3. MOBIC [Concomitant]
     Indication: NEURALGIA
     Dosage: UNK

REACTIONS (8)
  - ARTHRALGIA [None]
  - DIZZINESS [None]
  - FALL [None]
  - JOINT SWELLING [None]
  - OEDEMA PERIPHERAL [None]
  - PAIN IN EXTREMITY [None]
  - PENILE SIZE REDUCED [None]
  - SEXUAL DYSFUNCTION [None]
